FAERS Safety Report 16561235 (Version 1)
Quarter: 2019Q3

REPORT INFORMATION
  Report Type: Spontaneous
  Country: ES (occurrence: ES)
  Receive Date: 20190711
  Receipt Date: 20190711
  Transmission Date: 20191004
  Serious: Yes (Hospitalization)
  Sender: FDA-Public Use
  Company Number: ES-TEVA-2019-ES-1074634

PATIENT
  Age: 83 Year
  Sex: Female

DRUGS (6)
  1. TRAMADOL 50 [Suspect]
     Active Substance: TRAMADOL
     Route: 048
     Dates: start: 20180308, end: 20180324
  2. DEPRAX 100 MG (TRAZODONE HYDROCHLORIDE) [Suspect]
     Active Substance: TRAZODONE HYDROCHLORIDE
     Route: 048
     Dates: start: 20180308, end: 20180324
  3. HTZ/AMILORIDE [Suspect]
     Active Substance: AMILORIDE HYDROCHLORIDE\HYDROCHLOROTHIAZIDE
     Route: 048
     Dates: start: 20180308, end: 20180324
  4. LORAZEPAM 1 MGR [Suspect]
     Active Substance: LORAZEPAM
     Route: 048
     Dates: start: 20180308, end: 20180324
  5. MORFINA [Suspect]
     Active Substance: MORPHINE HYDROCHLORIDE
     Route: 048
     Dates: start: 20180308, end: 20180324
  6. DAONIL [Suspect]
     Active Substance: GLYBURIDE
     Route: 048
     Dates: start: 20180308, end: 20180324

REACTIONS (2)
  - Inappropriate antidiuretic hormone secretion [Recovered/Resolved]
  - Hyponatraemia [Recovered/Resolved]

NARRATIVE: CASE EVENT DATE: 20180324
